FAERS Safety Report 4764315-X (Version None)
Quarter: 2005Q3

REPORT INFORMATION
  Report Type: 
  Country: None (occurrence: None)
  Receive Date: 20050907
  Receipt Date: 20050907
  Transmission Date: 20060218
  Serious: Yes (Hospitalization)
  Sender: FDA-Public Use
  Company Number: None

PATIENT
  Age: 60 Year
  Sex: Male
  Weight: 85.1 kg

DRUGS (1)
  1. METOPROLOL [Suspect]
     Indication: CORONARY ARTERY DISEASE
     Dosage: 50MG, BID, ORAL
     Route: 048
     Dates: start: 20040227, end: 20050427

REACTIONS (1)
  - SINUS BRADYCARDIA [None]
